FAERS Safety Report 17550293 (Version 1)
Quarter: 2020Q1

REPORT INFORMATION
  Report Type: Spontaneous
  Country: CA (occurrence: CA)
  Receive Date: 20200317
  Receipt Date: 20200317
  Transmission Date: 20200409
  Serious: Yes (Other)
  Sender: FDA-Public Use
  Company Number: CA-PFIZER INC-2020112644

PATIENT
  Age: 57 Year
  Sex: Female

DRUGS (2)
  1. METHOTREXATE SODIUM. [Suspect]
     Active Substance: METHOTREXATE SODIUM
     Dosage: 25 MG TO 4 MG UNK
  2. HUMIRA [Suspect]
     Active Substance: ADALIMUMAB
     Dosage: UNK

REACTIONS (2)
  - Psoriatic arthropathy [Unknown]
  - Hepatic enzyme increased [Unknown]

NARRATIVE: CASE EVENT DATE: 2018
